FAERS Safety Report 7761921-5 (Version None)
Quarter: 2011Q3

REPORT INFORMATION
  Report Type: 
  Country: None (occurrence: None)
  Receive Date: 20110920
  Receipt Date: 20110913
  Transmission Date: 20111222
  Serious: No
  Sender: FDA-Public Use
  Company Number: US-PFIZER INC-2011219710

PATIENT
  Sex: Female

DRUGS (1)
  1. ZMAX [Suspect]
     Indication: OROPHARYNGEAL PAIN
     Dosage: UNK
     Route: 048
     Dates: start: 20110723, end: 20110724

REACTIONS (3)
  - PYREXIA [None]
  - URTICARIA [None]
  - PRURITUS [None]
